FAERS Safety Report 11014831 (Version 2)
Quarter: 2015Q2

REPORT INFORMATION
  Report Type: Spontaneous
  Country: US (occurrence: US)
  Receive Date: 20150412
  Receipt Date: 20150525
  Transmission Date: 20150821
  Serious: No
  Sender: FDA-Public Use
  Company Number: US-JNJFOC-20131111493

PATIENT

DRUGS (4)
  1. RIBAVIRIN. [Interacting]
     Active Substance: RIBAVIRIN
     Indication: CHRONIC HEPATITIS C
     Dosage: (1200 MG, N = 18), (1000 MG, N=4),??(800 MG, N=3), (600 MG, N=1)??N=NO. OF PATIENTS
     Route: 065
  2. BOCEPREVIR [Interacting]
     Active Substance: BOCEPREVIR
     Indication: CHRONIC HEPATITIS C
     Route: 065
  3. TRAMADOL HYDROCHLORIDE. [Suspect]
     Active Substance: TRAMADOL HYDROCHLORIDE
     Indication: PRODUCT USED FOR UNKNOWN INDICATION
     Route: 065
  4. PEGYLATED INTERFERON NOS [Interacting]
     Active Substance: PEGINTERFERON ALFA-2A OR PEGINTERFERON ALFA-2B OR PEGINTERFERON BETA-1A OR PEGINTERFERON LAMBDA-1A
     Indication: CHRONIC HEPATITIS C
     Dosage: 180 ?G, N=20), (150 ?G N=2), (135 ?G, N=2), 120 ?G, N=2)N=NO. OF PATIENTS
     Route: 065

REACTIONS (1)
  - Drug interaction [Unknown]
